FAERS Safety Report 26123011 (Version 4)
Quarter: 2025Q4

REPORT INFORMATION
  Report Type: Report from Study
  Country: CA (occurrence: CA)
  Receive Date: 20251204
  Receipt Date: 20251231
  Transmission Date: 20260117
  Serious: Yes (Death, Hospitalization, Other)
  Sender: PFIZER
  Company Number: CA-PFIZER INC-202500236792

PATIENT
  Age: 77 Year
  Sex: Male

DRUGS (2)
  1. IXIFI [Suspect]
     Active Substance: INFLIXIMAB-QBTX
     Indication: Crohn^s disease
     Dosage: 10 MG/KG, EVERY 8 WEEKS [HOSPITAL START(W0), W2 THEN 6]
     Route: 042
     Dates: start: 20251023
  2. IXIFI [Suspect]
     Active Substance: INFLIXIMAB-QBTX
     Dosage: 10 MG/KG (EVERY 8 WEEKS)(HOSPITAL START)
     Route: 042
     Dates: start: 20251106

REACTIONS (6)
  - Hepatic cirrhosis [Fatal]
  - Ascites [Recovering/Resolving]
  - Tachycardia [Not Recovered/Not Resolved]
  - Bacterial infection [Not Recovered/Not Resolved]
  - Mobility decreased [Unknown]
  - Muscle atrophy [Not Recovered/Not Resolved]

NARRATIVE: CASE EVENT DATE: 20250101
